FAERS Safety Report 8973464 (Version 1)
Quarter: 2012Q4

REPORT INFORMATION
  Report Type: 
  Country: US (occurrence: US)
  Receive Date: 20121218
  Receipt Date: 20121218
  Transmission Date: 20130627
  Serious: Yes (Other)
  Sender: FDA-Public Use
  Company Number: US-BRISTOL-MYERS SQUIBB COMPANY-16809147

PATIENT

DRUGS (8)
  1. ABILIFY [Suspect]
     Indication: BIPOLAR DISORDER
     Route: 048
  2. ABILIFY [Suspect]
     Indication: DEPRESSION
     Route: 048
  3. ZYPREXA [Suspect]
     Indication: BIPOLAR DISORDER
  4. ZYPREXA [Suspect]
     Indication: DEPRESSION
  5. RISPERIDAL [Suspect]
     Indication: DEPRESSION
  6. RISPERIDAL [Suspect]
     Indication: BIPOLAR DISORDER
  7. GEODON [Suspect]
     Indication: BIPOLAR DISORDER
  8. GEODON [Suspect]
     Indication: DEPRESSION

REACTIONS (1)
  - Diabetes mellitus [Unknown]
